FAERS Safety Report 14571961 (Version 2)
Quarter: 2018Q1

REPORT INFORMATION
  Report Type: Spontaneous
  Country: BR (occurrence: BR)
  Receive Date: 20180226
  Receipt Date: 20180228
  Transmission Date: 20180509
  Serious: Yes (Other)
  Sender: FDA-Public Use
  Company Number: PHHY2018BR028567

PATIENT
  Sex: Female
  Weight: 52 kg

DRUGS (2)
  1. FORASEQ [Suspect]
     Active Substance: BUDESONIDE\FORMOTEROL FUMARATE
     Indication: BRONCHITIS
     Dosage: UNK UNK, BID
     Route: 055
  2. TAMOXIFEN [Concomitant]
     Active Substance: TAMOXIFEN
     Indication: BREAST CANCER
     Dosage: 20 M, QD
     Route: 048
     Dates: start: 2016

REACTIONS (4)
  - Cough [Recovering/Resolving]
  - Bronchitis [Recovering/Resolving]
  - Nasal pruritus [Recovering/Resolving]
  - Dyspnoea [Recovering/Resolving]
